FAERS Safety Report 5962224-1 (Version None)
Quarter: 2008Q4

REPORT INFORMATION
  Report Type: 
  Country: None (occurrence: None)
  Receive Date: 20081121
  Receipt Date: 20081111
  Transmission Date: 20090506
  Serious: No
  Sender: FDA-Public Use
  Company Number: US-B.I. PHARMACEUTICALS,INC./RIDGEFIELD-2008-BP-17063BP

PATIENT
  Age: 48 Year
  Sex: Female

DRUGS (1)
  1. ZANTAC 75 [Suspect]
     Indication: ULCER HAEMORRHAGE
     Dosage: 150MG
     Route: 048
     Dates: start: 20081111

REACTIONS (1)
  - DRUG INEFFECTIVE [None]
